FAERS Safety Report 19477439 (Version 1)
Quarter: 2021Q2

REPORT INFORMATION
  Report Type: Spontaneous
  Country: US (occurrence: US)
  Receive Date: 20210630
  Receipt Date: 20210630
  Transmission Date: 20210717
  Serious: No
  Sender: FDA-Public Use
  Company Number: US-PFIZER INC-2021757563

PATIENT
  Age: 80 Year
  Sex: Male
  Weight: 83.46 kg

DRUGS (1)
  1. MEKTOVI [Suspect]
     Active Substance: BINIMETINIB
     Indication: METASTATIC MALIGNANT MELANOMA
     Dosage: 15 MG, 2X/DAY (EVERY 12 HOURS)
     Route: 048
     Dates: start: 202103, end: 20210409

REACTIONS (3)
  - Skin lesion [Recovered/Resolved]
  - Rash [Recovering/Resolving]
  - Neoplasm progression [Unknown]

NARRATIVE: CASE EVENT DATE: 2021
